FAERS Safety Report 18053837 (Version 1)
Quarter: 2020Q3

REPORT INFORMATION
  Report Type: Report from Study
  Country: CA (occurrence: CA)
  Receive Date: 20200722
  Receipt Date: 20200722
  Transmission Date: 20201103
  Serious: Yes (Other)
  Sender: FDA-Public Use
  Company Number: CA-ACCORD-191501

PATIENT
  Age: 71 Year
  Sex: Female

DRUGS (4)
  1. COSENTYX [Suspect]
     Active Substance: SECUKINUMAB
     Indication: PSORIASIS
     Dosage: 1 EVERY 1 MONTHS
     Route: 058
  2. BETAMETHASONE. [Concomitant]
     Active Substance: BETAMETHASONE
     Route: 065
  3. POLYSPORIN [Concomitant]
     Active Substance: BACITRACIN ZINC\POLYMYXIN B SULFATE
     Route: 065
  4. METHOTREXATE. [Suspect]
     Active Substance: METHOTREXATE
     Indication: PRODUCT USED FOR UNKNOWN INDICATION
     Route: 065

REACTIONS (8)
  - Blood pressure systolic increased [Unknown]
  - Alopecia [Unknown]
  - Inappropriate schedule of product administration [Unknown]
  - Lower respiratory tract infection [Unknown]
  - Vulval cancer stage III [Unknown]
  - Drug ineffective [Unknown]
  - Cough [Unknown]
  - Psoriasis [Unknown]
